FAERS Safety Report 23763154 (Version 1)
Quarter: 2024Q2

REPORT INFORMATION
  Report Type: Spontaneous
  Country: AT (occurrence: AT)
  Receive Date: 20240419
  Receipt Date: 20240419
  Transmission Date: 20240715
  Serious: Yes (Other)
  Sender: FDA-Public Use
  Company Number: None

PATIENT
  Sex: Male

DRUGS (1)
  1. MYCOBUTIN [Suspect]
     Active Substance: RIFABUTIN
     Dosage: UNK

REACTIONS (16)
  - Arthralgia [Unknown]
  - Disorientation [Unknown]
  - Odynophagia [Unknown]
  - Movement disorder [Unknown]
  - Loss of consciousness [Unknown]
  - Nausea [Unknown]
  - Speech disorder [Unknown]
  - Eye pain [Unknown]
  - Skin exfoliation [Unknown]
  - Mental disorder [Unknown]
  - Tremor [Unknown]
  - Chromaturia [Unknown]
  - Muscle spasms [Unknown]
  - Confusional state [Unknown]
  - Headache [Unknown]
  - Body temperature increased [Unknown]

NARRATIVE: CASE EVENT DATE: 20240101
